FAERS Safety Report 13083130 (Version 2)
Quarter: 2017Q1

REPORT INFORMATION
  Report Type: Report from Study
  Country: None (occurrence: US)
  Receive Date: 20170104
  Receipt Date: 20170224
  Transmission Date: 20170428
  Serious: Yes (Other)
  Sender: FDA-Public Use
  Company Number: US-ABBVIE-16K-163-1826311-00

PATIENT
  Sex: Female

DRUGS (1)
  1. HUMIRA [Suspect]
     Active Substance: ADALIMUMAB
     Indication: RHEUMATOID ARTHRITIS
     Route: 058
     Dates: end: 20160927

REACTIONS (12)
  - Ear pain [Not Recovered/Not Resolved]
  - Respiratory tract congestion [Unknown]
  - Injection site pruritus [Unknown]
  - Otitis media [Not Recovered/Not Resolved]
  - Arthralgia [Unknown]
  - Deafness unilateral [Not Recovered/Not Resolved]
  - Exostosis [Unknown]
  - Nerve root compression [Unknown]
  - Sinus congestion [Unknown]
  - Middle ear effusion [Not Recovered/Not Resolved]
  - Dizziness [Unknown]
  - Feeling drunk [Unknown]
